FAERS Safety Report 24689195 (Version 1)
Quarter: 2024Q4

REPORT INFORMATION
  Report Type: Spontaneous
  Country: PL (occurrence: PL)
  Receive Date: 20241203
  Receipt Date: 20241203
  Transmission Date: 20250115
  Serious: Yes (Hospitalization)
  Sender: ALEXION PHARMACEUTICALS
  Company Number: None

PATIENT
  Age: 69 Year

DRUGS (17)
  1. TICAGRELOR [Suspect]
     Active Substance: TICAGRELOR
     Indication: Cardiovascular event prophylaxis
     Route: 065
  2. TICAGRELOR [Suspect]
     Active Substance: TICAGRELOR
  3. TICAGRELOR [Suspect]
     Active Substance: TICAGRELOR
     Route: 065
  4. TICAGRELOR [Suspect]
     Active Substance: TICAGRELOR
  5. TORSEMIDE [Suspect]
     Active Substance: TORSEMIDE
     Indication: Cardiovascular event prophylaxis
  6. TORSEMIDE [Suspect]
     Active Substance: TORSEMIDE
     Route: 065
  7. PRIMACOR [Suspect]
     Active Substance: MILRINONE LACTATE
     Indication: Polyneuropathy
  8. PRIMACOR [Suspect]
     Active Substance: MILRINONE LACTATE
     Route: 065
  9. ATORVASTATIN CALCIUM [Suspect]
     Active Substance: ATORVASTATIN CALCIUM
     Indication: Cardiovascular disorder
  10. ATORVASTATIN CALCIUM [Suspect]
     Active Substance: ATORVASTATIN CALCIUM
     Route: 065
  11. ACARD [Concomitant]
     Indication: Ischaemic heart disease prophylaxis
  12. ACARD [Concomitant]
     Route: 065
  13. NEBIVOLOL [Concomitant]
     Active Substance: NEBIVOLOL
     Indication: Hypertension
  14. NEBIVOLOL [Concomitant]
     Active Substance: NEBIVOLOL
     Indication: Cardiac failure
     Route: 065
  15. RAMIPRIL [Concomitant]
     Active Substance: RAMIPRIL
     Indication: Cardiovascular disorder
  16. RAMIPRIL [Concomitant]
     Active Substance: RAMIPRIL
     Route: 065
  17. PANTOPRAZOLE SODIUM [Concomitant]
     Active Substance: PANTOPRAZOLE SODIUM
     Indication: Peptic ulcer

REACTIONS (4)
  - Muscular weakness [Recovering/Resolving]
  - Spinal pain [Recovering/Resolving]
  - Hyperuricaemia [Recovering/Resolving]
  - Blood creatinine increased [Recovering/Resolving]
